FAERS Safety Report 5097205-6 (Version None)
Quarter: 2006Q3

REPORT INFORMATION
  Report Type: 
  Country: None (occurrence: None)
  Receive Date: 20060828
  Receipt Date: 20060720
  Transmission Date: 20061208
  Serious: Yes (Other)
  Sender: FDA-Public Use
  Company Number: CHNY2006DE02165

PATIENT
  Sex: Male

DRUGS (1)
  1. FENISTIL (NCH) [Suspect]
     Indication: ERYTHEMA
     Dosage: TOPICAL
     Route: 061
     Dates: start: 20060701, end: 20060701

REACTIONS (12)
  - APPLICATION SITE ERYTHEMA [None]
  - APPLICATION SITE PRURITUS [None]
  - APPLICATION SITE REACTION [None]
  - APPLICATION SITE SWELLING [None]
  - EYE SWELLING [None]
  - FEELING ABNORMAL [None]
  - INSOMNIA [None]
  - PRURITUS [None]
  - SKIN FISSURES [None]
  - SKIN LESION [None]
  - SLEEP DISORDER [None]
  - SWELLING FACE [None]
